FAERS Safety Report 13629076 (Version 1)
Quarter: 2017Q2

REPORT INFORMATION
  Report Type: Report from Study
  Country: US (occurrence: US)
  Receive Date: 20170608
  Receipt Date: 20170608
  Transmission Date: 20170830
  Serious: No
  Sender: FDA-Public Use
  Company Number: GXBR2017US001666

PATIENT
  Sex: Male
  Weight: 23.5 kg

DRUGS (2)
  1. PROBIOTICS [Concomitant]
     Active Substance: PROBIOTICS NOS
     Dosage: UNK DF, UNK
  2. OMNITROPE [Suspect]
     Active Substance: SOMATROPIN
     Indication: HYPOPITUITARISM
     Dosage: 0.5 MG, QD
     Route: 058
     Dates: start: 20170424

REACTIONS (1)
  - Rash [Recovering/Resolving]
